FAERS Safety Report 8007004-0 (Version None)
Quarter: 2011Q4

REPORT INFORMATION
  Report Type: 
  Country: None (occurrence: None)
  Receive Date: 20111227
  Receipt Date: 20111219
  Transmission Date: 20120403
  Serious: Yes (Other)
  Sender: FDA-Public Use
  Company Number: JP-JNJFOC-20110608955

PATIENT
  Age: 7 Decade
  Sex: Female

DRUGS (1)
  1. ITRACONAZOLE [Suspect]
     Indication: ORAL CANDIDIASIS
     Route: 048
     Dates: start: 20110301, end: 20110801

REACTIONS (1)
  - LIVER DISORDER [None]
